FAERS Safety Report 9624199 (Version 1)
Quarter: 2013Q4

REPORT INFORMATION
  Report Type: Spontaneous
  Country: GB (occurrence: GB)
  Receive Date: 20131015
  Receipt Date: 20131015
  Transmission Date: 20140711
  Serious: Yes (Other)
  Sender: FDA-Public Use
  Company Number: GB-CUBIST PHARMACEUTICALS, INC.-2013CBST000937

PATIENT
  Sex: 0

DRUGS (2)
  1. CUBICIN [Suspect]
     Indication: PRODUCT USED FOR UNKNOWN INDICATION
     Dosage: 6 MG/KG, UNK
     Route: 065
  2. CUBICIN [Suspect]
     Dosage: 500 MG, UNK
     Route: 065

REACTIONS (2)
  - Enterococcal infection [Unknown]
  - Bacteraemia [Unknown]
